FAERS Safety Report 17628530 (Version 2)
Quarter: 2020Q2

REPORT INFORMATION
  Report Type: Report from Study
  Country: None (occurrence: US)
  Receive Date: 20200406
  Receipt Date: 20200617
  Transmission Date: 20200713
  Serious: Yes (Hospitalization)
  Sender: FDA-Public Use
  Company Number: US-ABBVIE-20K-163-3351078-00

PATIENT
  Sex: Male

DRUGS (1)
  1. VENCLEXTA [Suspect]
     Active Substance: VENETOCLAX
     Indication: ACUTE MYELOID LEUKAEMIA
     Route: 048
     Dates: start: 20200302, end: 2020

REACTIONS (9)
  - Abnormal faeces [Unknown]
  - Insomnia [Unknown]
  - Dehydration [Unknown]
  - Weight decreased [Unknown]
  - Constipation [Recovered/Resolved]
  - Escherichia infection [Unknown]
  - Pneumonia [Unknown]
  - Unevaluable event [Unknown]
  - White blood cell count decreased [Unknown]

NARRATIVE: CASE EVENT DATE: 2020
